FAERS Safety Report 5241542-9 (Version None)
Quarter: 2007Q1

REPORT INFORMATION
  Report Type: 
  Country: None (occurrence: None)
  Receive Date: 20070220
  Receipt Date: 20070212
  Transmission Date: 20070707
  Serious: Yes (Hospitalization, Other)
  Sender: FDA-Public Use
  Company Number: DE-GLAXOSMITHKLINE-B0458882A

PATIENT
  Sex: Female

DRUGS (3)
  1. FORMIGRAN [Suspect]
     Indication: MIGRAINE
     Route: 065
     Dates: start: 20061201, end: 20061201
  2. IBUPROFEN [Concomitant]
     Indication: MIGRAINE
  3. MAXALT [Concomitant]

REACTIONS (2)
  - AUTOIMMUNE HEPATITIS [None]
  - JAUNDICE [None]
